FAERS Safety Report 25858759 (Version 1)
Quarter: 2025Q3

REPORT INFORMATION
  Report Type: Spontaneous
  Country: US (occurrence: US)
  Receive Date: 20250929
  Receipt Date: 20250929
  Transmission Date: 20251020
  Serious: Yes (Death, Other)
  Sender: MELINTA THERAPEUTICS
  Company Number: US-MELINTA THERAPEUTICS, LLC-US-MLNT-25-00240

PATIENT

DRUGS (2)
  1. VABOMERE [Suspect]
     Active Substance: MEROPENEM\VABORBACTAM
     Indication: Perirectal abscess
  2. VABOMERE [Suspect]
     Active Substance: MEROPENEM\VABORBACTAM
     Indication: Achromobacter infection

REACTIONS (2)
  - Death [Fatal]
  - Off label use [Fatal]
